FAERS Safety Report 23042509 (Version 1)
Quarter: 2023Q4

REPORT INFORMATION
  Report Type: Spontaneous
  Country: US (occurrence: US)
  Receive Date: 20231008
  Receipt Date: 20231008
  Transmission Date: 20240109
  Serious: No
  Sender: FDA-Public Use
  Company Number: US-BRISTOL-MYERS SQUIBB COMPANY-2023-142407

PATIENT
  Age: 24 Year
  Sex: Female

DRUGS (1)
  1. SPRYCEL [Suspect]
     Active Substance: DASATINIB
     Indication: Chronic myeloid leukaemia
     Route: 048
     Dates: start: 202309

REACTIONS (5)
  - Fatigue [Unknown]
  - Diarrhoea [Unknown]
  - Brain fog [Unknown]
  - Arthralgia [Unknown]
  - Myalgia [Unknown]
